FAERS Safety Report 20303598 (Version 2)
Quarter: 2022Q1

REPORT INFORMATION
  Report Type: Spontaneous
  Country: US (occurrence: None)
  Receive Date: 20220106
  Receipt Date: 20220216
  Transmission Date: 20220423
  Serious: No
  Sender: FDA-Public Use
  Company Number: 2021A882587

PATIENT
  Age: 27397 Day
  Sex: Male
  Weight: 104.3 kg

DRUGS (2)
  1. BYDUREON BCISE [Suspect]
     Active Substance: EXENATIDE
     Indication: Diabetes mellitus
     Route: 058
  2. INSULIN NOS [Concomitant]
     Active Substance: INSULIN NOS

REACTIONS (4)
  - Pain [Recovered/Resolved]
  - Incorrect dose administered by device [Unknown]
  - Device leakage [Unknown]
  - Drug delivery system issue [Unknown]

NARRATIVE: CASE EVENT DATE: 20211129
